FAERS Safety Report 9308116 (Version 2)
Quarter: 2013Q2

REPORT INFORMATION
  Report Type: Spontaneous
  Country: GB (occurrence: GB)
  Receive Date: 20130524
  Receipt Date: 20130620
  Transmission Date: 20140414
  Serious: Yes (Hospitalization)
  Sender: FDA-Public Use
  Company Number: GB-ASTRAZENECA-2013SE34469

PATIENT
  Age: 81 Year
  Sex: Female
  Weight: 46.4 kg

DRUGS (1)
  1. MARCAIN HEAVY [Suspect]
     Indication: SPINAL ANAESTHESIA
     Route: 037
     Dates: start: 20130513, end: 20130513

REACTIONS (1)
  - Meningitis bacterial [Recovered/Resolved]
